FAERS Safety Report 4380825-1 (Version None)
Quarter: 2004Q2

REPORT INFORMATION
  Report Type: 
  Country: None (occurrence: None)
  Receive Date: 20040616
  Receipt Date: 20040611
  Transmission Date: 20050107
  Serious: Yes (Life-Threatening)
  Sender: FDA-Public Use
  Company Number: 8165

PATIENT
  Age: 67 Year
  Sex: Female

DRUGS (15)
  1. METHOTREXATE [Suspect]
     Indication: RHEUMATOID ARTHRITIS
  2. ADCAL-D3 [Concomitant]
  3. GLYCERYL TRINITRATE [Concomitant]
  4. NICORANDIL [Concomitant]
  5. ACETAMINOPHEN [Concomitant]
  6. FUROSEMIDE [Concomitant]
  7. WARFARIN SODIUM [Concomitant]
  8. LANSOPRAZOLE [Concomitant]
  9. GABAPENTIN [Concomitant]
  10. TRAMADOL [Concomitant]
  11. CLOPIDOGREL BISULFATE [Concomitant]
  12. PREDNISOLONE [Concomitant]
  13. CELECOXIB [Concomitant]
  14. AMITRIPTYLINE HCL [Concomitant]
  15. BISOPROLOL [Concomitant]

REACTIONS (3)
  - METASTASES TO LIVER [None]
  - METASTASES TO LUNG [None]
  - RENAL CELL CARCINOMA STAGE UNSPECIFIED [None]
